FAERS Safety Report 25104329 (Version 2)
Quarter: 2025Q2

REPORT INFORMATION
  Report Type: Other
  Country: CA (occurrence: CA)
  Receive Date: 20250321
  Receipt Date: 20250404
  Transmission Date: 20250717
  Serious: No
  Sender: TOLMAR
  Company Number: CA-20250310-a0f1bc

PATIENT
  Age: 77 Year
  Sex: Male

DRUGS (4)
  1. ELIGARD [Suspect]
     Active Substance: LEUPROLIDE ACETATE
     Indication: Prostate cancer
     Dosage: 22.5 MG, EVERY 3 MONTHS
     Route: 058
     Dates: start: 20210626
  2. ELIGARD [Suspect]
     Active Substance: LEUPROLIDE ACETATE
     Indication: Prostate cancer
     Dosage: 30 MG, EVERY 4 MONTHS
     Route: 058
     Dates: start: 20230510
  3. ELIGARD [Suspect]
     Active Substance: LEUPROLIDE ACETATE
     Dosage: 30 MG, EVERY 4 MONTHS
     Route: 058
     Dates: start: 20241107
  4. ELIGARD [Suspect]
     Active Substance: LEUPROLIDE ACETATE
     Dosage: 30 MG, EVERY 4 MONTHS
     Route: 058
     Dates: start: 20250318

REACTIONS (3)
  - Nasopharyngitis [Unknown]
  - Influenza [Unknown]
  - Intentional product use issue [Recovered/Resolved]

NARRATIVE: CASE EVENT DATE: 20250318
